FAERS Safety Report 6812923-4 (Version None)
Quarter: 2010Q3

REPORT INFORMATION
  Report Type: 
  Country: None (occurrence: None)
  Receive Date: 20100701
  Receipt Date: 20100622
  Transmission Date: 20110219
  Serious: Yes (Hospitalization, Other)
  Sender: FDA-Public Use
  Company Number: JP-WYE-H15515110

PATIENT
  Sex: Female
  Weight: 43 kg

DRUGS (2)
  1. PREMARIN [Suspect]
     Indication: INFERTILITY
     Route: 048
     Dates: start: 20091001, end: 20100514
  2. HYSRON [Suspect]
     Indication: INFERTILITY
     Route: 048
     Dates: end: 20100514

REACTIONS (9)
  - ALANINE AMINOTRANSFERASE INCREASED [None]
  - BILIRUBINURIA [None]
  - DECREASED APPETITE [None]
  - FAECES DISCOLOURED [None]
  - HYPERBILIRUBINAEMIA [None]
  - JAUNDICE [None]
  - LIVER DISORDER [None]
  - PRURITUS GENERALISED [None]
  - URINE COLOUR ABNORMAL [None]
